FAERS Safety Report 15386541 (Version 1)
Quarter: 2018Q3

REPORT INFORMATION
  Report Type: Spontaneous
  Country: US (occurrence: US)
  Receive Date: 20180914
  Receipt Date: 20180914
  Transmission Date: 20181010
  Serious: Yes (Other)
  Sender: FDA-Public Use
  Company Number: US-FOUNDATIONCONSUMERHC-2018-US-015009

PATIENT
  Age: 72 Year
  Sex: Female
  Weight: 92.99 kg

DRUGS (2)
  1. NEO?SYNEPHRINE REGULAR STRENGTH [Suspect]
     Active Substance: PHENYLEPHRINE HYDROCHLORIDE
     Indication: EAR DISORDER
     Dosage: USED NASALLY QID FOR APPROX. 48 YEARS, THEN BEGAN TO USE NASALLY 1?2 TIMES PER DAY FOR PAST 2 YEARS.
     Route: 045
     Dates: start: 1970, end: 20180831
  2. UNSPECIFIED ANTIBIOTICS [Concomitant]
     Active Substance: UNSPECIFIED INGREDIENT
     Dosage: USED INTERMITTENTLY ON UNSPECIFIED DATES

REACTIONS (4)
  - Anosmia [Unknown]
  - Rebound nasal congestion [Not Recovered/Not Resolved]
  - Intentional product misuse [Recovered/Resolved]
  - Dependence [Unknown]

NARRATIVE: CASE EVENT DATE: 1970
